FAERS Safety Report 25272162 (Version 1)
Quarter: 2025Q2

REPORT INFORMATION
  Report Type: Spontaneous
  Country: US (occurrence: US)
  Receive Date: 20250506
  Receipt Date: 20250506
  Transmission Date: 20250717
  Serious: No
  Sender: ALCON
  Company Number: US-ALCON LABORATORIES-ALC2024US005350

PATIENT
  Sex: Female

DRUGS (1)
  1. ROCKLATAN [Suspect]
     Active Substance: LATANOPROST\NETARSUDIL MESYLATE
     Indication: Ocular discomfort
     Route: 047

REACTIONS (3)
  - Product closure removal difficult [Unknown]
  - Product label issue [Unknown]
  - Product dose omission issue [Unknown]

NARRATIVE: CASE EVENT DATE: 20241204
